FAERS Safety Report 4655921-1 (Version None)
Quarter: 2005Q2

REPORT INFORMATION
  Report Type: 
  Country: None (occurrence: None)
  Receive Date: 20050506
  Receipt Date: 20050506
  Transmission Date: 20051028
  Serious: Yes (Other)
  Sender: FDA-Public Use
  Company Number: None

PATIENT
  Sex: Male
  Weight: 68.0396 kg

DRUGS (1)
  1. FLOMAX [Suspect]
     Indication: URINARY RETENTION
     Dosage: ORAL
     Route: 048
     Dates: start: 20050101, end: 20050505

REACTIONS (4)
  - CATARACT OPERATION COMPLICATION [None]
  - HERNIA [None]
  - IMPAIRED HEALING [None]
  - IRIS DISORDER [None]
